FAERS Safety Report 15207216 (Version 2)
Quarter: 2018Q3

REPORT INFORMATION
  Report Type: Report from Study
  Country: MX (occurrence: MX)
  Receive Date: 20180727
  Receipt Date: 20180731
  Transmission Date: 20181010
  Serious: Yes (Other)
  Sender: FDA-Public Use
  Company Number: PHHY2015MX168303

PATIENT
  Sex: Female

DRUGS (4)
  1. GAAP [Concomitant]
     Indication: GLAUCOMA
     Dosage: 1 DRP, QHS
     Dates: start: 2010
  2. EXFORGE [Suspect]
     Active Substance: AMLODIPINE BESYLATE\VALSARTAN
     Indication: HYPERTENSION
     Dosage: 1 DF (AMLODIPINE 5MG AND VALSARTAN 160MG), QD (STARTED 6 YEARS AGO APPROX.)
     Route: 048
     Dates: end: 20161010
  3. NOOTROPIL [Concomitant]
     Active Substance: PIRACETAM
     Indication: VERTIGO
     Route: 065
  4. AZARGA [Suspect]
     Active Substance: BRINZOLAMIDE\TIMOLOL MALEATE
     Indication: GLAUCOMA
     Dosage: 1 DRP, Q12H
     Route: 065
     Dates: start: 2011

REACTIONS (3)
  - Oedema peripheral [Not Recovered/Not Resolved]
  - Blood pressure increased [Unknown]
  - Drug ineffective [Unknown]
